FAERS Safety Report 6751356-6 (Version None)
Quarter: 2010Q2

REPORT INFORMATION
  Report Type: 
  Country: None (occurrence: None)
  Receive Date: 20100527
  Receipt Date: 20100512
  Transmission Date: 20101027
  Serious: Yes (Hospitalization, Other)
  Sender: FDA-Public Use
  Company Number: 2010001648

PATIENT
  Age: 75 Year
  Sex: Female
  Weight: 47.75 kg

DRUGS (8)
  1. TARCEVA [Suspect]
     Indication: LUNG ADENOCARCINOMA
     Dosage: (100 MG,QD),ORAL
     Route: 048
     Dates: start: 20100311, end: 20100412
  2. URSO 250 [Concomitant]
  3. MAGNESIUM OXIDE (MAGNESIUM OXIDE) [Concomitant]
  4. HIBON (RIBOFLAVIN TETRABUTYRATE) [Concomitant]
  5. PYDOXAL (PYRIDOXAL PHOSPHATE) [Concomitant]
  6. PERINDOPRIL ERBUMINE [Concomitant]
  7. LIVALO [Concomitant]
  8. VALSARTAN [Concomitant]

REACTIONS (13)
  - ANGER [None]
  - CONTUSION [None]
  - DEPRESSED LEVEL OF CONSCIOUSNESS [None]
  - EYE DISCHARGE [None]
  - FAECAL INCONTINENCE [None]
  - FALL [None]
  - FRUSTRATION [None]
  - GAIT DISTURBANCE [None]
  - IRRITABILITY [None]
  - LOSS OF CONSCIOUSNESS [None]
  - MOVEMENT DISORDER [None]
  - TREMOR [None]
  - URINARY INCONTINENCE [None]
